FAERS Safety Report 25018825 (Version 1)
Quarter: 2025Q1

REPORT INFORMATION
  Report Type: Spontaneous
  Country: US (occurrence: US)
  Receive Date: 20250227
  Receipt Date: 20250227
  Transmission Date: 20250409
  Serious: No
  Sender: AVADEL CNS PHARMACEUTICALS, LLC
  Company Number: US-AVADEL CNS PHARMACEUTICALS, LLC-2024AVA02582

PATIENT
  Sex: Female

DRUGS (2)
  1. LUMRYZ [Suspect]
     Active Substance: SODIUM OXYBATE
     Dates: end: 202412
  2. LUMRYZ [Suspect]
     Active Substance: SODIUM OXYBATE
     Dates: start: 202412

REACTIONS (5)
  - Fatigue [Not Recovered/Not Resolved]
  - Bruxism [Not Recovered/Not Resolved]
  - Sleep inertia [Not Recovered/Not Resolved]
  - Muscle tightness [Not Recovered/Not Resolved]
  - Drug ineffective [Recovered/Resolved]
